FAERS Safety Report 24897335 (Version 2)
Quarter: 2025Q2

REPORT INFORMATION
  Report Type: Spontaneous
  Country: US (occurrence: US)
  Receive Date: 20250129
  Receipt Date: 20250529
  Transmission Date: 20250716
  Serious: Yes (Disabling)
  Sender: NOVO NORDISK
  Company Number: US-NOVOPROD-1356099

PATIENT
  Sex: Male

DRUGS (1)
  1. WEGOVY [Suspect]
     Active Substance: SEMAGLUTIDE
     Indication: Product used for unknown indication
     Route: 058

REACTIONS (1)
  - Deafness [Not Recovered/Not Resolved]
